FAERS Safety Report 20216917 (Version 1)
Quarter: 2021Q4

REPORT INFORMATION
  Report Type: Report from Study
  Country: FR (occurrence: FR)
  Receive Date: 20211222
  Receipt Date: 20211222
  Transmission Date: 20220303
  Serious: Yes (Other)
  Sender: FDA-Public Use
  Company Number: FR-GILEAD-2021-0562384

PATIENT
  Sex: Female
  Weight: 70 kg

DRUGS (1)
  1. SACITUZUMAB GOVITECAN [Suspect]
     Active Substance: SACITUZUMAB GOVITECAN
     Indication: Breast cancer metastatic
     Dosage: 10 MG/KG
     Route: 065
     Dates: start: 20211125, end: 20211203

REACTIONS (1)
  - Febrile bone marrow aplasia [Not Recovered/Not Resolved]
